FAERS Safety Report 5657079-9 (Version None)
Quarter: 2008Q1

REPORT INFORMATION
  Report Type: 
  Country: None (occurrence: None)
  Receive Date: 20080310
  Receipt Date: 20080228
  Transmission Date: 20080703
  Serious: Yes (Hospitalization)
  Sender: FDA-Public Use
  Company Number: US-JNJFOC-20080102753

PATIENT
  Sex: Female
  Weight: 56 kg

DRUGS (13)
  1. DOXORUBICIN HCL [Suspect]
     Indication: MULTIPLE MYELOMA
     Route: 042
  2. VELCADE [Suspect]
     Indication: MULTIPLE MYELOMA
     Route: 042
  3. THALIDOMIDE [Suspect]
     Indication: MULTIPLE MYELOMA
     Route: 048
  4. ACYCLOVIR [Concomitant]
     Route: 048
  5. AMOXICILLIN [Concomitant]
     Route: 065
  6. BONIVA [Concomitant]
     Route: 065
  7. CALCIUM CARBONATE [Concomitant]
     Route: 065
  8. COLACE [Concomitant]
     Route: 065
  9. MDI [Concomitant]
     Route: 065
  10. COMPAZINE [Concomitant]
     Route: 065
  11. SENNOKOT [Concomitant]
     Route: 065
  12. TYLENOL (CAPLET) [Concomitant]
     Indication: PAIN
     Route: 065
  13. COUMADIN [Concomitant]
     Route: 065

REACTIONS (6)
  - ANAEMIA [None]
  - HYPOALBUMINAEMIA [None]
  - HYPOCALCAEMIA [None]
  - HYPONATRAEMIA [None]
  - INTERSTITIAL LUNG DISEASE [None]
  - LYMPHOPENIA [None]
